FAERS Safety Report 7321785-0 (Version None)
Quarter: 2011Q1

REPORT INFORMATION
  Report Type: 
  Country: None (occurrence: None)
  Receive Date: 20110228
  Receipt Date: 20110221
  Transmission Date: 20110831
  Serious: Yes (Other)
  Sender: FDA-Public Use
  Company Number: US-ASTRAZENECA-2011SE09650

PATIENT
  Age: 55 Year
  Sex: Female
  Weight: 74.8 kg

DRUGS (4)
  1. NEURONTIN [Concomitant]
  2. SEROQUEL [Suspect]
     Indication: BIPOLAR DISORDER
     Route: 048
     Dates: start: 20010101
  3. TRAZODONE HCL [Concomitant]
  4. ZOLOFT [Concomitant]

REACTIONS (1)
  - OVARIAN CANCER [None]
